FAERS Safety Report 14860210 (Version 1)
Quarter: 2018Q2

REPORT INFORMATION
  Report Type: Spontaneous
  Country: US (occurrence: US)
  Receive Date: 20180420
  Receipt Date: 20180420
  Transmission Date: 20180711
  Serious: Yes (Other)
  Sender: FDA-Public Use
  Company Number: None

PATIENT
  Age: 51 Year
  Sex: Female
  Weight: 123.8 kg

DRUGS (2)
  1. ALTEPLASE. [Suspect]
     Active Substance: ALTEPLASE
     Indication: ISCHAEMIC STROKE
     Dosage: ?          OTHER FREQUENCY:ONCE;?INTRAVENOUS (NOT OTHERWISE SPECIFIED)
     Route: 042
     Dates: start: 20180420
  2. IOPAMIDOL (ISOVUE-370) 76% INJECTION 100ML [Concomitant]
     Dates: start: 20180420, end: 20180420

REACTIONS (2)
  - Hypoaesthesia [None]
  - Lip swelling [None]

NARRATIVE: CASE EVENT DATE: 20180420
